FAERS Safety Report 9896266 (Version 1)
Quarter: 2014Q1

REPORT INFORMATION
  Report Type: Spontaneous
  Country: US (occurrence: US)
  Receive Date: 20140213
  Receipt Date: 20140213
  Transmission Date: 20141002
  Serious: No
  Sender: FDA-Public Use
  Company Number: US-BRISTOL-MYERS SQUIBB COMPANY-18803940

PATIENT
  Age: 46 Year
  Sex: Female
  Weight: 122.45 kg

DRUGS (7)
  1. ABATACEPT SUBQ INJECTION 125MG/ML [Suspect]
     Indication: RHEUMATOID ARTHRITIS
     Route: 058
  2. FUROSEMIDE [Concomitant]
  3. KLOR-CON [Concomitant]
  4. LYRICA [Concomitant]
  5. METHOCARBAMOL [Concomitant]
  6. TRAMADOL [Concomitant]
  7. VENLAFAXINE HCL [Concomitant]

REACTIONS (1)
  - Hypersensitivity [Unknown]
